FAERS Safety Report 6125092-3 (Version None)
Quarter: 2009Q1

REPORT INFORMATION
  Report Type: 
  Country: None (occurrence: None)
  Receive Date: 20090319
  Receipt Date: 20090311
  Transmission Date: 20090719
  Serious: Yes (Other)
  Sender: FDA-Public Use
  Company Number: US-MERCK-0704USA01592

PATIENT
  Age: 80 Year
  Sex: Female
  Weight: 57 kg

DRUGS (7)
  1. FOSAMAX [Suspect]
     Indication: OSTEOPOROSIS
     Route: 048
     Dates: start: 20010501, end: 20060101
  2. FOSAMAX [Suspect]
     Route: 048
     Dates: end: 20010507
  3. FOSAMAX [Suspect]
     Route: 048
     Dates: end: 20000101
  4. TYLENOL [Concomitant]
     Route: 065
  5. OMEGA-3 MARINE TRIGLYCERIDES [Concomitant]
     Route: 048
  6. [THERAPY UNSPECIFIED] [Concomitant]
     Indication: OSTEOPOROSIS
     Route: 065
  7. VITAMIN D (UNSPECIFIED) [Concomitant]
     Route: 065

REACTIONS (10)
  - ASTHENIA [None]
  - COLONIC POLYP [None]
  - HYPERCHOLESTEROLAEMIA [None]
  - NON-CARDIAC CHEST PAIN [None]
  - ORAL TORUS [None]
  - OROPHARYNGEAL PAIN [None]
  - OSTEOARTHRITIS [None]
  - OSTEOMYELITIS [None]
  - OSTEONECROSIS [None]
  - SCOLIOSIS [None]
